FAERS Safety Report 15336854 (Version 1)
Quarter: 2018Q3

REPORT INFORMATION
  Report Type: Spontaneous
  Country: US (occurrence: US)
  Receive Date: 20180831
  Receipt Date: 20180831
  Transmission Date: 20181010
  Serious: No
  Sender: FDA-Public Use
  Company Number: US-SHIRE-US201833424

PATIENT
  Sex: Female

DRUGS (1)
  1. XIIDRA [Suspect]
     Active Substance: LIFITEGRAST
     Indication: DRY EYE
     Dosage: UNK
     Route: 047
     Dates: start: 20180726

REACTIONS (14)
  - Vision blurred [Unknown]
  - Instillation site discomfort [Unknown]
  - Instillation site reaction [Unknown]
  - Blood pressure abnormal [Unknown]
  - Instillation site pain [Unknown]
  - Visual impairment [Unknown]
  - Off label use [Unknown]
  - Inappropriate schedule of drug administration [Unknown]
  - Instillation site irritation [Unknown]
  - Headache [Unknown]
  - Drug ineffective [Unknown]
  - Weight decreased [Unknown]
  - Instillation site lacrimation [Unknown]
  - Dysgeusia [Unknown]
